FAERS Safety Report 8976591 (Version 1)
Quarter: 2012Q4

REPORT INFORMATION
  Report Type: Report from Study
  Country: NL (occurrence: NL)
  Receive Date: 20121220
  Receipt Date: 20121220
  Transmission Date: 20130627
  Serious: Yes (Death, Hospitalization)
  Sender: FDA-Public Use
  Company Number: NL-ABBOTT-12P-114-1010546-00

PATIENT
  Age: 0 Year
  Sex: Female
  Weight: 3.31 kg

DRUGS (5)
  1. SYNAGIS [Suspect]
     Indication: PREMATURE BABY
     Route: 030
     Dates: start: 20120917, end: 20120917
  2. SYNAGIS [Suspect]
     Route: 030
     Dates: start: 20121013, end: 20121013
  3. SYNAGIS [Suspect]
     Route: 030
     Dates: start: 20121109, end: 20121109
  4. VITAMINE D VOOR SENIOREN [Concomitant]
     Indication: PROPHYLAXIS
  5. COLECALCIFEROL [Concomitant]
     Indication: PRODUCT USED FOR UNKNOWN INDICATION

REACTIONS (7)
  - Pyrexia [Fatal]
  - Cough [Fatal]
  - Unevaluable event [Fatal]
  - Death [Fatal]
  - Meningococcal sepsis [Fatal]
  - Meningitis [Fatal]
  - Bacterial infection [Fatal]
